FAERS Safety Report 17915796 (Version 1)
Quarter: 2020Q2

REPORT INFORMATION
  Report Type: Report from Study
  Country: JP (occurrence: JP)
  Receive Date: 20200619
  Receipt Date: 20200619
  Transmission Date: 20200714
  Serious: Yes (Hospitalization, Other)
  Sender: FDA-Public Use
  Company Number: PHHY2013JP170514

PATIENT
  Age: 85 Year
  Sex: Male
  Weight: 65 kg

DRUGS (35)
  1. UNKNOWNDRUG [Concomitant]
     Active Substance: UNSPECIFIED INGREDIENT
     Dosage: 5 MG,
     Route: 048
     Dates: start: 20111115
  2. MEXITIL [Concomitant]
     Active Substance: MEXILETINE HYDROCHLORIDE
     Indication: PRODUCT USED FOR UNKNOWN INDICATION
     Dosage: 100 MG,
     Route: 048
  3. UNKNOWNDRUG [Concomitant]
     Active Substance: UNSPECIFIED INGREDIENT
     Indication: IMMUNE THROMBOCYTOPENIA
     Dosage: 30 MG,
     Route: 048
     Dates: start: 20110628, end: 20110712
  4. REVOLADE TAB [Suspect]
     Active Substance: ELTROMBOPAG
     Indication: IMMUNE THROMBOCYTOPENIA
     Dosage: 12.5 MG,
     Route: 048
     Dates: start: 20110720, end: 20110920
  5. REVOLADE TAB [Suspect]
     Active Substance: ELTROMBOPAG
     Dosage: 12.5 MG, 4W
     Route: 048
     Dates: start: 20120305, end: 20130323
  6. ARTIST [Concomitant]
     Active Substance: CARVEDILOL
     Indication: PRODUCT USED FOR UNKNOWN INDICATION
     Dosage: 2.5 MG,
     Route: 048
  7. PANTOSIN [Concomitant]
     Active Substance: PANTETHINE
     Indication: PRODUCT USED FOR UNKNOWN INDICATION
     Dosage: 600 MG,
     Route: 048
  8. MAGMITT [Concomitant]
     Active Substance: MAGNESIUM OXIDE
     Indication: PRODUCT USED FOR UNKNOWN INDICATION
     Dosage: 660 MG,
     Route: 048
  9. UNKNOWNDRUG [Concomitant]
     Active Substance: UNSPECIFIED INGREDIENT
     Dosage: 3 MG,
     Route: 048
     Dates: start: 20120507, end: 20120520
  10. FUROSEMIDE. [Concomitant]
     Active Substance: FUROSEMIDE
     Indication: PRODUCT USED FOR UNKNOWN INDICATION
     Dosage: 20 MG,
     Route: 048
     Dates: start: 20120418, end: 20120501
  11. PURSENNID [Concomitant]
     Indication: PRODUCT USED FOR UNKNOWN INDICATION
     Dosage: 12 MG,
     Route: 048
     Dates: start: 20120502, end: 20120516
  12. REVOLADE TAB [Suspect]
     Active Substance: ELTROMBOPAG
     Dosage: 25 MG,
     Route: 048
     Dates: start: 20110921, end: 20111016
  13. UNKNOWNDRUG [Concomitant]
     Active Substance: UNSPECIFIED INGREDIENT
     Dosage: 15 MG,
     Route: 048
     Dates: start: 20110720, end: 20110801
  14. UNKNOWNDRUG [Concomitant]
     Active Substance: UNSPECIFIED INGREDIENT
     Dosage: 5 MG,
     Route: 048
     Dates: start: 20110816, end: 20110829
  15. UNKNOWNDRUG [Concomitant]
     Active Substance: UNSPECIFIED INGREDIENT
     Dosage: 4 MG,
     Route: 048
     Dates: start: 20110830, end: 20110912
  16. REVOLADE TAB [Suspect]
     Active Substance: ELTROMBOPAG
     Dosage: 25 MG,
     Route: 048
     Dates: start: 20111212, end: 20120304
  17. OMEPRAL [Concomitant]
     Active Substance: OMEPRAZOLE
     Indication: PRODUCT USED FOR UNKNOWN INDICATION
     Dosage: 20 MG,
     Route: 048
  18. UNKNOWNDRUG [Concomitant]
     Active Substance: UNSPECIFIED INGREDIENT
     Dosage: 10 MG,
     Route: 048
     Dates: start: 20110802, end: 20110815
  19. UNKNOWNDRUG [Concomitant]
     Active Substance: UNSPECIFIED INGREDIENT
     Dosage: 3 MG,
     Route: 048
     Dates: start: 20110913, end: 20111114
  20. UNKNOWNDRUG [Concomitant]
     Active Substance: UNSPECIFIED INGREDIENT
     Dosage: 4 MG,
     Route: 048
     Dates: start: 20120416, end: 20120506
  21. PREDONINE [Concomitant]
     Active Substance: PREDNISOLONE
     Indication: IMMUNE THROMBOCYTOPENIA
     Dosage: 5 MG,
     Route: 048
     Dates: end: 20120415
  22. REVOLADE TAB [Suspect]
     Active Substance: ELTROMBOPAG
     Dosage: 37.5 MG,
     Route: 048
     Dates: start: 20111017, end: 20111211
  23. BERAPROST SODIUM [Concomitant]
     Active Substance: BERAPROST SODIUM
     Indication: PRODUCT USED FOR UNKNOWN INDICATION
     Dosage: 60 UG,
     Route: 048
  24. EXCELASE [Concomitant]
     Active Substance: PANCRELIPASE
     Indication: PRODUCT USED FOR UNKNOWN INDICATION
     Route: 048
  25. OPALMON [Concomitant]
     Active Substance: LIMAPROST
     Indication: PRODUCT USED FOR UNKNOWN INDICATION
     Dosage: 20 UG,
     Route: 048
  26. METHYCOBAL [Concomitant]
     Active Substance: METHYLCOBALAMIN
     Indication: PRODUCT USED FOR UNKNOWN INDICATION
     Dosage: 1500 UG,
     Route: 048
  27. PIMENOL [Concomitant]
     Active Substance: PIRMENOL HYDROCHLORIDE
     Indication: PRODUCT USED FOR UNKNOWN INDICATION
     Dosage: 100 MG,
     Route: 048
  28. UNKNOWNDRUG [Concomitant]
     Active Substance: UNSPECIFIED INGREDIENT
     Dosage: 2 MG,
     Route: 048
     Dates: start: 20120521, end: 20120610
  29. LONGES [Concomitant]
     Active Substance: LISINOPRIL
     Indication: PRODUCT USED FOR UNKNOWN INDICATION
     Dosage: 10 MG,
     Route: 048
  30. LUPRAC [Concomitant]
     Active Substance: TORSEMIDE
     Indication: PRODUCT USED FOR UNKNOWN INDICATION
     Dosage: 4 MG,
     Route: 048
     Dates: start: 20120815
  31. ZYLORIC [Concomitant]
     Active Substance: ALLOPURINOL
     Indication: PRODUCT USED FOR UNKNOWN INDICATION
     Dosage: 200 MG,
     Route: 048
  32. VESICARE [Concomitant]
     Active Substance: SOLIFENACIN SUCCINATE
     Indication: PRODUCT USED FOR UNKNOWN INDICATION
     Dosage: 5 MG,
     Route: 048
  33. UNKNOWNDRUG [Concomitant]
     Active Substance: UNSPECIFIED INGREDIENT
     Dosage: 20 MG,
     Route: 048
     Dates: start: 20110713, end: 20110719
  34. UNKNOWNDRUG [Concomitant]
     Active Substance: UNSPECIFIED INGREDIENT
     Dosage: 1 MG,
     Route: 048
     Dates: start: 20120611, end: 20120708
  35. FUROSEMIDE. [Concomitant]
     Active Substance: FUROSEMIDE
     Dosage: 40 MG,
     Route: 048
     Dates: start: 20120502

REACTIONS (5)
  - Congestive hepatopathy [Unknown]
  - Liver function test abnormal [Unknown]
  - Renal function test abnormal [Unknown]
  - Cerebellar infarction [Recovering/Resolving]
  - Dehydration [Unknown]

NARRATIVE: CASE EVENT DATE: 20121217
